FAERS Safety Report 10101788 (Version 1)
Quarter: 2014Q2

REPORT INFORMATION
  Report Type: Spontaneous
  Country: AU (occurrence: None)
  Receive Date: 20140422
  Receipt Date: 20140422
  Transmission Date: 20141212
  Serious: Yes (Other)
  Sender: FDA-Public Use
  Company Number: 2014P1003171

PATIENT
  Age: 69 Year
  Sex: Female

DRUGS (6)
  1. SULFAMETHOXAZOLE + TRIMETHOPRIM [Suspect]
     Indication: PNEUMOCYSTIS JIROVECII PNEUMONIA
     Dosage: 320/1600 MG; TID; IV
     Route: 042
  2. LEFLUNAMIDE [Concomitant]
  3. METHOTREXATE [Concomitant]
  4. METOPROLOL [Concomitant]
  5. LERCANIDIPINE [Concomitant]
  6. ROSUVASTATIN [Concomitant]

REACTIONS (1)
  - Hyponatraemia [None]
